FAERS Safety Report 4726296-4 (Version None)
Quarter: 2005Q3

REPORT INFORMATION
  Report Type: 
  Country: None (occurrence: None)
  Receive Date: 20050727
  Receipt Date: 20050713
  Transmission Date: 20060218
  Serious: Yes (Hospitalization)
  Sender: FDA-Public Use
  Company Number: PHBS2005JP10094

PATIENT
  Age: 68 Year
  Sex: Male

DRUGS (4)
  1. LAMISIL [Suspect]
     Indication: NAIL TINEA
     Dosage: UNK, UNK
     Route: 048
     Dates: start: 20050710, end: 20050712
  2. MAINTOWA [Concomitant]
     Dates: start: 20030101
  3. NISUTADIL [Concomitant]
     Dates: start: 20000101
  4. SAYMOTIN [Concomitant]
     Dates: start: 19950101

REACTIONS (6)
  - ALANINE AMINOTRANSFERASE INCREASED [None]
  - ASPARTATE AMINOTRANSFERASE INCREASED [None]
  - BLOOD BILIRUBIN INCREASED [None]
  - HEPATITIS [None]
  - HEPATITIS A POSITIVE [None]
  - LIVER DISORDER [None]
